FAERS Safety Report 6249894-8 (Version None)
Quarter: 2009Q2

REPORT INFORMATION
  Report Type: 
  Country: None (occurrence: None)
  Receive Date: 20090629
  Receipt Date: 20090625
  Transmission Date: 20091009
  Serious: Yes (Hospitalization)
  Sender: FDA-Public Use
  Company Number: FR-WYE-G03924109

PATIENT
  Sex: Male

DRUGS (6)
  1. TAZOCILLINE [Suspect]
     Dosage: 12 G OF PIPERACILLIN TOTAL DAILY
     Route: 042
     Dates: start: 20090301, end: 20090101
  2. KARDEGIC [Concomitant]
     Dosage: UNKNOWN
  3. TAHOR [Concomitant]
     Dosage: UNKNOWN
  4. OMIX [Concomitant]
     Dosage: UNKNOWN
  5. OFLOCET [Suspect]
     Dosage: 400 MG TOTAL DAILY
     Dates: start: 20090301
  6. PULMICORT-100 [Concomitant]
     Dosage: UNKNOWN

REACTIONS (6)
  - CYTOLYTIC HEPATITIS [None]
  - HAEMOPTYSIS [None]
  - HEPATITIS CHOLESTATIC [None]
  - LEUKOPENIA [None]
  - RHABDOMYOLYSIS [None]
  - THROMBOCYTOPENIA [None]
